FAERS Safety Report 11869090 (Version 1)
Quarter: 2015Q4

REPORT INFORMATION
  Report Type: Spontaneous
  Country: US (occurrence: US)
  Receive Date: 20151226
  Receipt Date: 20151226
  Transmission Date: 20160305
  Serious: Yes (Death, Other)
  Sender: FDA-Public Use
  Company Number: US-TAKEDA-TPA2012A08158

PATIENT

DRUGS (7)
  1. METFORMIN [Concomitant]
     Active Substance: METFORMIN HYDROCHLORIDE
     Dates: start: 1990
  2. AVANDIA [Concomitant]
     Active Substance: ROSIGLITAZONE MALEATE
     Dates: start: 1900
  3. ACTOS [Suspect]
     Active Substance: PIOGLITAZONE HYDROCHLORIDE
     Indication: TYPE 2 DIABETES MELLITUS
     Dosage: 15 MG, UNK
     Route: 048
     Dates: start: 2007, end: 2010
  4. AVANDIA [Concomitant]
     Active Substance: ROSIGLITAZONE MALEATE
  5. GLUCOPHAGE [Concomitant]
     Active Substance: METFORMIN HYDROCHLORIDE
     Dates: start: 1900
  6. HUMALOG [Concomitant]
     Active Substance: INSULIN LISPRO
     Dates: start: 1985
  7. LANTUS [Concomitant]
     Active Substance: INSULIN GLARGINE
     Dates: start: 2000

REACTIONS (9)
  - Libido decreased [Unknown]
  - Emotional distress [Unknown]
  - Heart rate irregular [Unknown]
  - Fluid retention [Unknown]
  - Bladder pain [Unknown]
  - Death [Fatal]
  - Insomnia [Unknown]
  - Urinary incontinence [Unknown]
  - Bladder cancer [Unknown]

NARRATIVE: CASE EVENT DATE: 200908
